FAERS Safety Report 13577711 (Version 1)
Quarter: 2017Q2

REPORT INFORMATION
  Report Type: Spontaneous
  Country: GB (occurrence: GB)
  Receive Date: 20170524
  Receipt Date: 20170524
  Transmission Date: 20170830
  Serious: Yes (Other)
  Sender: FDA-Public Use
  Company Number: GB-EISAI MEDICAL RESEARCH-EC-2017-027708

PATIENT
  Age: 77 Year
  Sex: Male
  Weight: 72.11 kg

DRUGS (2)
  1. ARICEPT [Suspect]
     Active Substance: DONEPEZIL HYDROCHLORIDE
     Route: 048
     Dates: start: 2014, end: 20150201
  2. ARICEPT [Suspect]
     Active Substance: DONEPEZIL HYDROCHLORIDE
     Indication: EARLY ONSET FAMILIAL ALZHEIMER^S DISEASE
     Route: 048
     Dates: start: 20140801, end: 2014

REACTIONS (13)
  - Eructation [Unknown]
  - Dry skin [Recovered/Resolved with Sequelae]
  - Cough [Unknown]
  - Abnormal behaviour [Unknown]
  - Traumatic lung injury [Not Recovered/Not Resolved]
  - Chromaturia [Unknown]
  - Urinary incontinence [Recovered/Resolved with Sequelae]
  - Dyspepsia [Unknown]
  - Staring [Recovered/Resolved with Sequelae]
  - Nausea [Recovered/Resolved with Sequelae]
  - Nightmare [Recovered/Resolved with Sequelae]
  - Lacrimation increased [Recovered/Resolved with Sequelae]
  - Rhinorrhoea [Recovered/Resolved with Sequelae]

NARRATIVE: CASE EVENT DATE: 20141201
